FAERS Safety Report 6359218-3 (Version None)
Quarter: 2009Q3

REPORT INFORMATION
  Report Type: 
  Country: None (occurrence: None)
  Receive Date: 20090917
  Receipt Date: 20090908
  Transmission Date: 20100115
  Serious: Yes (Hospitalization, Other)
  Sender: FDA-Public Use
  Company Number: PHHY2009BR38179

PATIENT
  Sex: Male

DRUGS (1)
  1. FORASEQ [Suspect]
     Dosage: UNK

REACTIONS (4)
  - DIABETES MELLITUS [None]
  - DYSPNOEA [None]
  - LUNG DISORDER [None]
  - OEDEMA PERIPHERAL [None]
